FAERS Safety Report 6635024-7 (Version None)
Quarter: 2010Q1

REPORT INFORMATION
  Report Type: 
  Country: None (occurrence: None)
  Receive Date: 20100315
  Receipt Date: 20100126
  Transmission Date: 20100710
  Serious: Yes (Other)
  Sender: FDA-Public Use
  Company Number: BR-BAYER-201010734LA

PATIENT
  Age: 24 Year
  Sex: Female

DRUGS (2)
  1. BETAFERON [Suspect]
     Indication: MULTIPLE SCLEROSIS
     Dosage: TOTAL DAILY DOSE: 8 MIU
     Route: 058
     Dates: start: 20060101
  2. LEVEL [Concomitant]
     Indication: CONTRACEPTION
     Dosage: TOTAL DAILY DOSE: 1 DF
     Route: 048
     Dates: start: 20050101

REACTIONS (6)
  - DISCOMFORT [None]
  - DYSKINESIA [None]
  - INJECTION SITE DISCOLOURATION [None]
  - INJECTION SITE RASH [None]
  - INJECTION SITE REACTION [None]
  - NERVOUSNESS [None]
